FAERS Safety Report 10613139 (Version 1)
Quarter: 2014Q4

REPORT INFORMATION
  Report Type: Report from Study
  Country: JP (occurrence: JP)
  Receive Date: 20141128
  Receipt Date: 20141128
  Transmission Date: 20150529
  Serious: Yes (Other)
  Sender: FDA-Public Use
  Company Number: JP-MERCK-1411JPN012716

PATIENT
  Age: 69 Year
  Sex: Female
  Weight: 52 kg

DRUGS (9)
  1. DOGMATYL [Concomitant]
     Active Substance: SULPIRIDE
     Indication: PROPHYLAXIS
     Dosage: 150 MG, 1 IN 1 DAY
     Route: 048
     Dates: start: 20140415
  2. RIBAVIRIN. [Suspect]
     Active Substance: RIBAVIRIN
     Dosage: 400 MG, 1 IN 1 DAY
     Route: 048
     Dates: start: 20140507, end: 20140512
  3. PEGINTRON [Suspect]
     Active Substance: PEGINTERFERON ALFA-2B
     Indication: CHRONIC HEPATITIS C
     Dosage: 1.5 MICROGRAM PER KILOGRAM, 1 IN 1 WEEK
     Route: 058
     Dates: start: 20140408, end: 20140507
  4. PEGINTRON [Suspect]
     Active Substance: PEGINTERFERON ALFA-2B
     Dosage: 1.34 MICROGRAM PER KILOGRAM, 1 IN 1 WEEK
     Route: 058
     Dates: start: 20140513, end: 20140922
  5. RIBAVIRIN. [Suspect]
     Active Substance: RIBAVIRIN
     Indication: CHRONIC HEPATITIS C
     Dosage: 600 MG, 1 IN 1 DAY
     Route: 048
     Dates: start: 20140408, end: 20140506
  6. RIBAVIRIN. [Suspect]
     Active Substance: RIBAVIRIN
     Dosage: 600 MG, 1 IN 1 DAY
     Route: 048
     Dates: start: 20140513, end: 20140526
  7. RIBAVIRIN. [Suspect]
     Active Substance: RIBAVIRIN
     Dosage: 200 MG, 1 IN 1 DAY
     Route: 048
     Dates: start: 20140527
  8. RIBAVIRIN. [Suspect]
     Active Substance: RIBAVIRIN
     Dosage: 300 MG, 1 IN 1 DAY
     Route: 048
     Dates: start: 20140702, end: 20140922
  9. SIMEPREVIR [Suspect]
     Active Substance: SIMEPREVIR
     Indication: CHRONIC HEPATITIS C
     Dosage: 100 MG, 1 IN 1 DAY
     Route: 048
     Dates: start: 20140408, end: 20140701

REACTIONS (3)
  - Anaemia [Recovered/Resolved]
  - Malaise [Recovered/Resolved]
  - Hyperthyroidism [Recovered/Resolved]

NARRATIVE: CASE EVENT DATE: 20140507
